FAERS Safety Report 16908402 (Version 1)
Quarter: 2019Q4

REPORT INFORMATION
  Report Type: Spontaneous
  Country: US (occurrence: US)
  Receive Date: 20190820
  Receipt Date: 20190820
  Transmission Date: 20200122
  Serious: Yes (Other)
  Sender: FDA-Public Use
  Company Number: None

PATIENT

DRUGS (1)
  1. DIUREX ULTRA [Suspect]
     Active Substance: CAFFEINE

REACTIONS (8)
  - Product label confusion [None]
  - Blister [None]
  - Gluten sensitivity [None]
  - Headache [None]
  - Reaction to excipient [None]
  - Cardiovascular disorder [None]
  - Vomiting [None]
  - Gastrointestinal disorder [None]

NARRATIVE: CASE EVENT DATE: 20190814
